FAERS Safety Report 10060686 (Version 1)
Quarter: 2014Q2

REPORT INFORMATION
  Report Type: Spontaneous
  Country: GB (occurrence: GB)
  Receive Date: 20140404
  Receipt Date: 20140404
  Transmission Date: 20141212
  Serious: Yes (Other)
  Sender: FDA-Public Use
  Company Number: GB-LUNDBECK-DKLU1098949

PATIENT
  Sex: Male

DRUGS (1)
  1. CLOBAZAM [Suspect]
     Indication: EPILEPSY
     Route: 048

REACTIONS (3)
  - Skin infection [Not Recovered/Not Resolved]
  - Skin reaction [Not Recovered/Not Resolved]
  - Rash pruritic [Not Recovered/Not Resolved]
